FAERS Safety Report 7740955-0 (Version None)
Quarter: 2011Q3

REPORT INFORMATION
  Report Type: 
  Country: None (occurrence: None)
  Receive Date: 20110909
  Receipt Date: 20110903
  Transmission Date: 20111222
  Serious: Yes (Life-Threatening, Hospitalization)
  Sender: FDA-Public Use
  Company Number: PHHY2011MX79278

PATIENT
  Sex: Female

DRUGS (2)
  1. RASILEZ (ALISKIREN) [Concomitant]
     Dosage: TWICE DAY
  2. EXFORGE HCT [Suspect]
     Indication: HYPERTENSION
     Dosage: VALSARTAN 160 MG, AMLODIPINE 5 MG, HYDROCHLOROTHIAZIDE 12.5 MG, BID
     Dates: start: 20110728, end: 20110827

REACTIONS (1)
  - CARDIOMEGALY [None]
